FAERS Safety Report 13160831 (Version 2)
Quarter: 2017Q2

REPORT INFORMATION
  Report Type: Spontaneous
  Country: MX (occurrence: MX)
  Receive Date: 20170130
  Receipt Date: 20170615
  Transmission Date: 20170830
  Serious: Yes (Other)
  Sender: FDA-Public Use
  Company Number: MX-ALVOGEN-2017-ALVOGEN-091266

PATIENT
  Age: 67 Year
  Sex: Female

DRUGS (7)
  1. DESVENLAFAXINE. [Interacting]
     Active Substance: DESVENLAFAXINE
     Indication: DEPRESSION
  2. RALOXIFENE. [Interacting]
     Active Substance: RALOXIFENE
     Indication: DEPRESSION
  3. PIRACETAM [Interacting]
     Active Substance: PIRACETAM
     Indication: DEPRESSION
  4. NIFEDIPINE. [Suspect]
     Active Substance: NIFEDIPINE
     Indication: HYPERTENSION
  5. LEVETIRACETAM. [Interacting]
     Active Substance: LEVETIRACETAM
     Indication: DEPRESSION
  6. ATORVASTATIN [Concomitant]
     Active Substance: ATORVASTATIN
     Indication: DYSLIPIDAEMIA
  7. QUETIAPINE. [Interacting]
     Active Substance: QUETIAPINE
     Indication: DEPRESSION

REACTIONS (4)
  - Drug interaction [Recovered/Resolved]
  - Intestinal perforation [Recovered/Resolved]
  - Colonic pseudo-obstruction [Recovered/Resolved]
  - Peritonitis [Recovered/Resolved]
